FAERS Safety Report 4374747-X (Version None)
Quarter: 2004Q2

REPORT INFORMATION
  Report Type: 
  Country: None (occurrence: None)
  Receive Date: 20040604
  Receipt Date: 20040524
  Transmission Date: 20050107
  Serious: Yes (Other)
  Sender: FDA-Public Use
  Company Number: 200412553BCC

PATIENT
  Age: 44 Year
  Sex: Male
  Weight: 95.2554 kg

DRUGS (2)
  1. ALEVE [Suspect]
     Indication: TENDON INJURY
     Dosage: 440 MG, BID, ORAL
     Route: 048
     Dates: start: 20040521
  2. HIGH BLOOD PRESSURE MEDICATION (NOS) [Concomitant]

REACTIONS (2)
  - ALCOHOL USE [None]
  - RENAL PAIN [None]
